FAERS Safety Report 5631672-1 (Version None)
Quarter: 2008Q1

REPORT INFORMATION
  Report Type: 
  Country: None (occurrence: None)
  Receive Date: 20080206
  Receipt Date: 20080131
  Transmission Date: 20080703
  Serious: Yes (Hospitalization)
  Sender: FDA-Public Use
  Company Number: 200712527

PATIENT
  Age: 9 Year
  Sex: Male
  Weight: 33 kg

DRUGS (4)
  1. VIVAGLOBIN [Suspect]
     Indication: HYPOGAMMAGLOBULINAEMIA
     Dosage: SC
     Route: 058
     Dates: start: 20071129
  2. SINGULAIR [Concomitant]
  3. ASMANEX TWISTHALER [Concomitant]
  4. XOPONEX [Concomitant]

REACTIONS (1)
  - MENINGITIS ASEPTIC [None]
